FAERS Safety Report 7328100-7 (Version None)
Quarter: 2011Q1

REPORT INFORMATION
  Report Type: 
  Country: None (occurrence: None)
  Receive Date: 20110303
  Receipt Date: 20110203
  Transmission Date: 20110831
  Serious: No
  Sender: FDA-Public Use
  Company Number: US-B.I. PHARMACEUTICALS,INC./RIDGEFIELD-2011-BP-03410BP

PATIENT
  Age: 76 Year
  Sex: Male
  Weight: 102 kg

DRUGS (9)
  1. SYMBICORT [Suspect]
     Indication: CHRONIC OBSTRUCTIVE PULMONARY DISEASE
     Dosage: 2 PUF
     Dates: start: 20100101
  2. VITAMIN D [Suspect]
     Route: 048
     Dates: start: 19990101
  3. FOLIC ACID [Suspect]
     Dosage: 2 MG
     Route: 048
     Dates: start: 19990101
  4. NICOTINE POLACRILEX [Suspect]
     Indication: NICOTINE DEPENDENCE
     Route: 002
     Dates: start: 20100701
  5. PRAVASTATIN [Suspect]
     Indication: BLOOD CHOLESTEROL INCREASED
     Dosage: 4 MG
     Route: 048
     Dates: start: 19990101
  6. WARFARIN [Suspect]
     Indication: ANTICOAGULANT THERAPY
     Dosage: 5 MG
     Route: 048
     Dates: start: 19990101
  7. FUROSEMIDE [Suspect]
     Dosage: 40 MG
     Route: 048
     Dates: start: 19990101
  8. ATROVENT HFA [Suspect]
     Indication: CHRONIC OBSTRUCTIVE PULMONARY DISEASE
     Route: 055
     Dates: start: 20100101
  9. METOPROLOL SUCCINATE [Suspect]
     Indication: CARDIAC DISORDER
     Dosage: 50 MG
     Route: 048
     Dates: start: 19990101

REACTIONS (5)
  - LIPOATROPHY [None]
  - SKIN WRINKLING [None]
  - SKIN DISORDER [None]
  - SKIN ATROPHY [None]
  - LACERATION [None]
